FAERS Safety Report 9936753 (Version 1)
Quarter: 2014Q1

REPORT INFORMATION
  Report Type: Spontaneous
  Country: US (occurrence: None)
  Receive Date: 20140107
  Receipt Date: 20140107
  Transmission Date: 20141002
  Serious: Yes (Other)
  Sender: FDA-Public Use
  Company Number: 2012AP000875

PATIENT
  Age: 69 Year
  Sex: Female

DRUGS (9)
  1. FLUTICASONE PROPIONATE NASAL SPRAY [Suspect]
     Indication: HYPERSENSITIVITY
     Dates: start: 20120308
  2. OMEPRAZOLE [Concomitant]
  3. CALCITRIOL [Concomitant]
  4. METOPROLOL [Concomitant]
  5. CITALOPRAM [Concomitant]
  6. AMLODIPINE [Concomitant]
  7. PRAVASTATIN [Concomitant]
  8. ZZOLPIDEM [Concomitant]
  9. MOMETASONE FUROATE [Concomitant]

REACTIONS (1)
  - Epistaxis [None]
